FAERS Safety Report 13358033 (Version 3)
Quarter: 2018Q2

REPORT INFORMATION
  Report Type: Spontaneous
  Country: US (occurrence: US)
  Receive Date: 20170322
  Receipt Date: 20180510
  Transmission Date: 20180711
  Serious: No
  Sender: FDA-Public Use
  Company Number: US-PFIZER INC-2017120991

PATIENT
  Age: 69 Year
  Sex: Female
  Weight: 63.5 kg

DRUGS (3)
  1. EUCRISA [Suspect]
     Active Substance: CRISABOROLE
     Indication: ERYTHEMA OF EYELID
  2. EUCRISA [Suspect]
     Active Substance: CRISABOROLE
     Indication: ERYTHEMA
     Dosage: ONLY ONE APPLICATION
     Route: 061
     Dates: start: 20170220, end: 20170220
  3. EUCRISA [Suspect]
     Active Substance: CRISABOROLE
     Indication: EYELID MARGIN CRUSTING

REACTIONS (1)
  - Eyelid pain [Recovering/Resolving]

NARRATIVE: CASE EVENT DATE: 20170220
